FAERS Safety Report 10564969 (Version 3)
Quarter: 2015Q1

REPORT INFORMATION
  Report Type: Report from Study
  Country: AR (occurrence: AR)
  Receive Date: 20141105
  Receipt Date: 20150119
  Transmission Date: 20150720
  Serious: Yes (Life-Threatening, Hospitalization)
  Sender: FDA-Public Use
  Company Number: AR-ROCHE-1484732

PATIENT
  Age: 69 Year
  Sex: Female

DRUGS (7)
  1. ATORVASTATIN [Concomitant]
     Active Substance: ATORVASTATIN
     Indication: HYPERCHOLESTEROLAEMIA
     Route: 048
     Dates: start: 20130825
  2. CIPROFLOXACIN. [Concomitant]
     Active Substance: CIPROFLOXACIN
     Indication: URINARY TRACT INFECTION
     Route: 048
     Dates: start: 20140316, end: 20140330
  3. TOCILIZUMAB [Suspect]
     Active Substance: TOCILIZUMAB
     Indication: RHEUMATOID ARTHRITIS
     Dosage: HER LAST DOSE PRIOR TO ONSET OF FACIAL PARESTHESIA AND LEFT BRONCHIAL WAS 24.3MG/KG ON 21/OCT/2014.
     Route: 042
     Dates: start: 20130625
  4. AMOXICILLIN/CLAVULANIC ACID [Concomitant]
     Active Substance: AMOXICILLIN\CLAVULANIC ACID
     Indication: URINARY TRACT INFECTION
     Route: 048
     Dates: start: 20140501, end: 20140507
  5. ACICLOVIR [Concomitant]
     Active Substance: ACYCLOVIR
     Indication: GENITAL HERPES
     Route: 061
     Dates: start: 20140501, end: 20140529
  6. PREDNISONE. [Concomitant]
     Active Substance: PREDNISONE
     Dosage: UNKNOWN FREQUENCY.
     Route: 048
     Dates: start: 20130130
  7. CLARITHROMYCIN. [Concomitant]
     Active Substance: CLARITHROMYCIN
     Indication: URINARY TRACT INFECTION
     Route: 048
     Dates: start: 20140501, end: 20140504

REACTIONS (1)
  - Paraesthesia [Recovered/Resolved]

NARRATIVE: CASE EVENT DATE: 20141026
